FAERS Safety Report 4358880-4 (Version None)
Quarter: 2004Q2

REPORT INFORMATION
  Report Type: 
  Country: None (occurrence: None)
  Receive Date: 20040511
  Receipt Date: 20040503
  Transmission Date: 20050107
  Serious: Yes (Other)
  Sender: FDA-Public Use
  Company Number: HQWYE712305MAY04

PATIENT
  Age: 22 Year
  Sex: Female
  Weight: 54.48 kg

DRUGS (4)
  1. EFFEXOR (VENALFAXINE HYDROCHLORIDE, TABLET) [Suspect]
     Indication: ANXIETY
     Dosage: ORAL
     Route: 048
  2. ROBITUSSIN COUGH AND COLD (GUAIFENESIN/DEXTROMETHORPHAN/PSEUDOEPHEDRIN [Suspect]
     Indication: COUGH
     Dosage: 100 CAPS (OVERDOSE AMOUNT), ORAL
     Route: 048
     Dates: start: 20040503, end: 20040503
  3. ROBITUSSIN COUGH AND COLD (GUAIFENESIN/DEXTROMETHORPHAN/PSEUDOEPHEDRIN [Suspect]
     Indication: NASOPHARYNGITIS
     Dosage: 100 CAPS (OVERDOSE AMOUNT), ORAL
     Route: 048
     Dates: start: 20040503, end: 20040503
  4. KLONOPIN [Concomitant]

REACTIONS (3)
  - AGGRESSION [None]
  - INTENTIONAL OVERDOSE [None]
  - SUICIDE ATTEMPT [None]
